FAERS Safety Report 15779258 (Version 3)
Quarter: 2019Q2

REPORT INFORMATION
  Report Type: Spontaneous
  Country: US (occurrence: US)
  Receive Date: 20190101
  Receipt Date: 20190520
  Transmission Date: 20190711
  Serious: No
  Sender: FDA-Public Use
  Company Number: US-PFIZER INC-2018536071

PATIENT
  Age: 66 Year
  Sex: Male

DRUGS (1)
  1. LYRICA [Suspect]
     Active Substance: PREGABALIN
     Dosage: 150 MG, 4X/DAY
     Route: 048

REACTIONS (3)
  - Drug hypersensitivity [Unknown]
  - Product use issue [Unknown]
  - Off label use [Unknown]
